FAERS Safety Report 7603904-1 (Version None)
Quarter: 2011Q3

REPORT INFORMATION
  Report Type: 
  Country: None (occurrence: None)
  Receive Date: 20110712
  Receipt Date: 20110701
  Transmission Date: 20111222
  Serious: Yes (Other)
  Sender: FDA-Public Use
  Company Number: CN-ROCHE-563794

PATIENT
  Age: 43 Year
  Sex: Female
  Weight: 55 kg

DRUGS (8)
  1. CYCLOSPORINE [Concomitant]
     Dosage: STRENGTH INCLUDED 50 MG AND 25 MG
     Route: 048
  2. CELLCEPT [Suspect]
     Dosage: 750 MG IN THE MORNING, 500 MG IN THE EVENING
     Route: 048
  3. PREDNISONE [Concomitant]
     Route: 048
  4. PREDNISONE [Concomitant]
     Indication: RENAL TRANSPLANT
     Route: 048
     Dates: start: 20050825
  5. CYCLOSPORINE [Concomitant]
     Indication: RENAL TRANSPLANT
     Dosage: STRENGTH INCLUDED 50 MG AND 25 MG
     Route: 048
     Dates: start: 20050825
  6. PREDNISONE [Concomitant]
     Route: 048
  7. CELLCEPT [Suspect]
     Indication: RENAL TRANSPLANT
     Route: 048
     Dates: start: 20050825
  8. BETALOC [Concomitant]
     Indication: HYPERTENSION
     Route: 048

REACTIONS (4)
  - IMPAIRED HEALING [None]
  - MELANOCYTIC NAEVUS [None]
  - FISTULA REPAIR [None]
  - INCISION SITE PAIN [None]
